FAERS Safety Report 13058311 (Version 1)
Quarter: 2016Q4

REPORT INFORMATION
  Report Type: Spontaneous
  Country: US (occurrence: US)
  Receive Date: 20161223
  Receipt Date: 20161223
  Transmission Date: 20170207
  Serious: No
  Sender: FDA-Public Use
  Company Number: None

PATIENT

DRUGS (1)
  1. CETUXIMAB CETUXIMAB [Suspect]
     Active Substance: CETUXIMAB

REACTIONS (2)
  - Dyspnoea [None]
  - Product preparation error [None]
